FAERS Safety Report 4626014-4 (Version None)
Quarter: 2005Q1

REPORT INFORMATION
  Report Type: 
  Country: None (occurrence: None)
  Receive Date: 20050330
  Receipt Date: 20050322
  Transmission Date: 20050727
  Serious: Yes (Hospitalization)
  Sender: FDA-Public Use
  Company Number: 2005-00585

PATIENT
  Age: 63 Year
  Sex: Male
  Weight: 77.9 kg

DRUGS (2)
  1. VELCADE [Suspect]
     Indication: MULTIPLE MYELOMA
     Dosage: 1.30 MG/M2, INTRAVENOUS
     Route: 042
     Dates: start: 20050315, end: 20050318
  2. TYLENOL [Concomitant]

REACTIONS (11)
  - CHEST DISCOMFORT [None]
  - CHILLS [None]
  - COUGH [None]
  - DIARRHOEA [None]
  - DYSPNOEA [None]
  - NEUTROPHIL COUNT INCREASED [None]
  - PHARYNGOLARYNGEAL PAIN [None]
  - PYREXIA [None]
  - RESPIRATORY TRACT CONGESTION [None]
  - TREATMENT NONCOMPLIANCE [None]
  - WHITE BLOOD CELL COUNT INCREASED [None]
